FAERS Safety Report 5128620-X (Version None)
Quarter: 2006Q4

REPORT INFORMATION
  Report Type: 
  Country: None (occurrence: None)
  Receive Date: 20061011
  Receipt Date: 20060927
  Transmission Date: 20070319
  Serious: Yes (Other)
  Sender: FDA-Public Use
  Company Number: 2006SP003376

PATIENT
  Age: 87 Year
  Sex: Female
  Weight: 70.3075 kg

DRUGS (9)
  1. XOPENEX [Suspect]
     Dosage: 45 MG; TID; INHALATION
     Route: 055
     Dates: end: 20060625
  2. FORMOTEROL [Concomitant]
  3. PROVENTIL [Concomitant]
  4. ASMANEX TWISTHALER [Concomitant]
  5. MUCINEX [Concomitant]
  6. AIRET [Concomitant]
  7. ATROVENT [Concomitant]
  8. MICRO-K [Concomitant]
  9. SIMVASTATIN [Concomitant]

REACTIONS (7)
  - BLOOD PRESSURE SYSTOLIC INCREASED [None]
  - COUGH [None]
  - DIZZINESS [None]
  - DYSPNOEA [None]
  - FEELING ABNORMAL [None]
  - LUNG DISORDER [None]
  - TRANSFUSION [None]
